FAERS Safety Report 4458226-7 (Version None)
Quarter: 2004Q3

REPORT INFORMATION
  Report Type: 
  Country: None (occurrence: None)
  Receive Date: 20040922
  Receipt Date: 20040914
  Transmission Date: 20050211
  Serious: Yes (Hospitalization)
  Sender: FDA-Public Use
  Company Number: 2004226756JP

PATIENT
  Age: 52 Year
  Sex: Male

DRUGS (3)
  1. AZULFIDINE [Suspect]
     Indication: RHEUMATOID ARTHRITIS
     Dosage: 1 G/DAY
     Dates: start: 20040715, end: 20040718
  2. PREDNISOLONE [Suspect]
     Dosage: 5 MG/DAY, ORAL
     Route: 048
     Dates: start: 20040715, end: 20040718
  3. FAMOTIDINE [Suspect]
     Dosage: 20 MG/DAY, ORAL
     Route: 048
     Dates: start: 20040715, end: 20040718

REACTIONS (4)
  - DEPRESSED LEVEL OF CONSCIOUSNESS [None]
  - PYREXIA [None]
  - STOMATITIS [None]
  - SYSTEMIC LUPUS ERYTHEMATOSUS [None]
